FAERS Safety Report 17986201 (Version 1)
Quarter: 2020Q3

REPORT INFORMATION
  Report Type: Spontaneous
  Country: US (occurrence: US)
  Receive Date: 20200706
  Receipt Date: 20200706
  Transmission Date: 20201103
  Serious: No
  Sender: FDA-Public Use
  Company Number: US-NOVOPROD-725385

PATIENT
  Age: 66 Year
  Sex: Female

DRUGS (2)
  1. RYBELSUS [Suspect]
     Active Substance: SEMAGLUTIDE
     Indication: TYPE 2 DIABETES MELLITUS
     Dosage: 3 MG, QD
     Route: 048
     Dates: start: 202002, end: 202003
  2. RYBELSUS [Suspect]
     Active Substance: SEMAGLUTIDE
     Dosage: 7 MG, QD
     Route: 048
     Dates: start: 202003, end: 202004

REACTIONS (8)
  - Skin odour abnormal [Recovering/Resolving]
  - Abnormal faeces [Recovering/Resolving]
  - Decreased appetite [Recovering/Resolving]
  - Dry mouth [Recovering/Resolving]
  - Urine odour abnormal [Recovering/Resolving]
  - Weight decreased [Recovered/Resolved]
  - Vomiting [Recovered/Resolved]
  - Nausea [Recovered/Resolved]

NARRATIVE: CASE EVENT DATE: 202002
